FAERS Safety Report 23966788 (Version 2)
Quarter: 2024Q3

REPORT INFORMATION
  Report Type: Spontaneous
  Country: US (occurrence: US)
  Receive Date: 20240612
  Receipt Date: 20240913
  Transmission Date: 20241016
  Serious: Yes (Other)
  Sender: JOHNSON AND JOHNSON
  Company Number: US-JNJFOC-20240601392

PATIENT
  Age: 69 Year

DRUGS (1)
  1. CARVYKTI [Suspect]
     Active Substance: CILTACABTAGENE AUTOLEUCEL
     Indication: Plasma cell myeloma
     Route: 065
     Dates: start: 202402

REACTIONS (3)
  - Polyneuropathy [Unknown]
  - Cranial nerve palsies multiple [Recovering/Resolving]
  - Neuropathy peripheral [Unknown]
